FAERS Safety Report 5065018-7 (Version None)
Quarter: 2006Q3

REPORT INFORMATION
  Report Type: 
  Country: None (occurrence: None)
  Receive Date: 20060728
  Receipt Date: 20041221
  Transmission Date: 20061208
  Serious: Yes (Hospitalization)
  Sender: FDA-Public Use
  Company Number: FR-ABBOTT-04P-056-0284340-00

PATIENT
  Age: 77 Year
  Sex: Female
  Weight: 63.7 kg

DRUGS (30)
  1. DEPAKENE [Suspect]
     Indication: EPILEPSY
     Route: 048
     Dates: start: 20041018, end: 20041101
  2. DEPAKENE [Suspect]
     Route: 048
     Dates: start: 20041102, end: 20041114
  3. DEPAKENE [Suspect]
     Route: 048
     Dates: start: 20041115, end: 20041115
  4. DEPAKENE [Suspect]
     Route: 048
     Dates: start: 20041116, end: 20041217
  5. DEPAKENE [Suspect]
     Route: 048
     Dates: start: 20041218
  6. VALPROIC ACID [Suspect]
     Indication: EPILEPSY
     Route: 042
     Dates: start: 20041014, end: 20041017
  7. AMIODARONE HYDROCHLORIDE [Suspect]
     Indication: ATRIAL FIBRILLATION
     Route: 048
     Dates: start: 20041109, end: 20041109
  8. AMIODARONE HYDROCHLORIDE [Suspect]
     Route: 048
     Dates: start: 20041110, end: 20041110
  9. AMIODARONE HYDROCHLORIDE [Suspect]
     Route: 048
     Dates: start: 20041111, end: 20041111
  10. AMIODARONE HYDROCHLORIDE [Suspect]
     Route: 048
     Dates: start: 20041112
  11. ACETAMINOPHEN [Suspect]
     Indication: DRUG USE FOR UNKNOWN INDICATION
     Route: 048
     Dates: start: 20041018
  12. ACETAMINOPHEN [Suspect]
     Route: 048
     Dates: start: 20041010, end: 20041013
  13. PAROXETINE HYDROCHLORIDE [Suspect]
     Indication: DEPRESSION
     Route: 048
     Dates: start: 20041018
  14. PAROXETINE HYDROCHLORIDE [Suspect]
     Route: 048
     Dates: start: 20041130, end: 20041202
  15. OMEPRAZOLE [Suspect]
     Indication: DRUG USE FOR UNKNOWN INDICATION
     Route: 048
     Dates: start: 20041018
  16. BUFLOMEDIL HYDROCHLORIDE [Suspect]
     Indication: DRUG USE FOR UNKNOWN INDICATION
     Route: 048
     Dates: start: 20041018
  17. BUFLOMEDIL HYDROCHLORIDE [Suspect]
     Route: 048
     Dates: start: 20041010
  18. BUFLOMEDIL HYDROCHLORIDE [Suspect]
     Route: 048
     Dates: start: 20041018
  19. BUFLOMEDIL HYDROCHLORIDE [Suspect]
     Route: 048
     Dates: start: 20041018
  20. BUFLOMEDIL HYDROCHLORIDE [Suspect]
     Route: 048
     Dates: start: 20041018
  21. CLOPIDOGREL BISULFATE [Concomitant]
     Indication: DRUG USE FOR UNKNOWN INDICATION
     Route: 048
     Dates: end: 20041013
  22. CLOPIDOGREL BISULFATE [Concomitant]
     Route: 048
     Dates: start: 20041018
  23. QUINAPRIL [Concomitant]
     Indication: DRUG USE FOR UNKNOWN INDICATION
     Route: 048
     Dates: end: 20041013
  24. QUINAPRIL [Concomitant]
     Route: 048
     Dates: start: 20041018
  25. LACTULOSE [Concomitant]
     Indication: DRUG USE FOR UNKNOWN INDICATION
     Route: 048
     Dates: end: 20041013
  26. LACTULOSE [Concomitant]
     Route: 048
     Dates: start: 20041018
  27. INSULIN [Concomitant]
     Indication: DIABETES MELLITUS NON-INSULIN-DEPENDENT
     Dosage: DAILY DOSE ADAPTED TO GLYCEMIA
     Route: 058
  28. GABAPENTIN [Concomitant]
     Indication: DRUG USE FOR UNKNOWN INDICATION
     Route: 048
     Dates: end: 20041013
  29. CITALOPRAM HYDROBROMIDE [Concomitant]
     Indication: DRUG USE FOR UNKNOWN INDICATION
     Dates: start: 20041130
  30. ACETAMINOPHEN [Concomitant]
     Indication: PAIN IN EXTREMITY

REACTIONS (5)
  - DEPRESSION [None]
  - DISTURBANCE IN ATTENTION [None]
  - DRUG LEVEL DECREASED [None]
  - EXTRAPYRAMIDAL DISORDER [None]
  - PARKINSONISM [None]
